FAERS Safety Report 4557344-2 (Version None)
Quarter: 2005Q1

REPORT INFORMATION
  Report Type: 
  Country: None (occurrence: None)
  Receive Date: 20050119
  Receipt Date: 20050119
  Transmission Date: 20050727
  Serious: Yes (Other)
  Sender: FDA-Public Use
  Company Number: None

PATIENT
  Age: 89 Year
  Sex: Male
  Weight: 70.3075 kg

DRUGS (7)
  1. MEMANTINE HCL [Suspect]
     Indication: VASCULAR DEMENTIA
     Dosage: 10MG   QDAY   ORAL
     Route: 048
     Dates: start: 20040805, end: 20041026
  2. SIMVASTATIN [Concomitant]
  3. RISPERIDONE [Concomitant]
  4. METOPROLOL [Concomitant]
  5. FERROUS SULFATE TAB [Concomitant]
  6. DONEPEZIL HCL [Concomitant]
  7. ASPIRIN [Concomitant]

REACTIONS (2)
  - AGITATION [None]
  - CONFUSIONAL STATE [None]
